FAERS Safety Report 5122625-0 (Version None)
Quarter: 2006Q4

REPORT INFORMATION
  Report Type: 
  Country: None (occurrence: None)
  Receive Date: 20061005
  Receipt Date: 20061005
  Transmission Date: 20070319
  Serious: Yes (Other)
  Sender: FDA-Public Use
  Company Number: None

PATIENT
  Age: 51 Year
  Sex: Female

DRUGS (1)
  1. ACIPHEX [Suspect]
     Dosage: 20MG PO
     Route: 048
     Dates: start: 20060924, end: 20060924

REACTIONS (2)
  - PRURITUS [None]
  - URTICARIA [None]
